FAERS Safety Report 8697547 (Version 7)
Quarter: 2013Q3

REPORT INFORMATION
  Report Type: Report from Study
  Country: FR (occurrence: FR)
  Receive Date: 20120801
  Receipt Date: 20130826
  Transmission Date: 20140515
  Serious: Yes (Other)
  Sender: FDA-Public Use
  Company Number: FR-TEVA-351340USA

PATIENT
  Age: 63 Year
  Sex: Female
  Weight: 62 kg

DRUGS (11)
  1. LEVACT [Suspect]
     Indication: B-CELL LYMPHOMA
     Route: 042
     Dates: start: 20111117
  2. LEVACT [Suspect]
     Route: 042
  3. LEVACT [Suspect]
     Route: 042
  4. MABTHERA [Suspect]
     Indication: B-CELL LYMPHOMA
     Dates: start: 20111117
  5. MABTHERA [Suspect]
     Route: 041
  6. MABTHERA [Suspect]
     Route: 041
  7. MABTHERA [Suspect]
     Route: 041
  8. MABTHERA [Suspect]
     Route: 041
  9. DEBRIDAT [Concomitant]
     Indication: ABDOMINAL PAIN
     Dosage: 300 MILLIGRAM DAILY;
     Route: 048
     Dates: start: 20120125, end: 20120202
  10. FORLAX [Concomitant]
     Indication: ABDOMINAL PAIN
     Dates: start: 20120125, end: 20120202
  11. LANSOYL [Concomitant]
     Indication: ABDOMINAL PAIN
     Dates: start: 20120125, end: 20120202

REACTIONS (1)
  - Myelofibrosis [Not Recovered/Not Resolved]
